FAERS Safety Report 12692468 (Version 1)
Quarter: 2016Q3

REPORT INFORMATION
  Report Type: Spontaneous
  Country: BR (occurrence: BR)
  Receive Date: 20160829
  Receipt Date: 20160829
  Transmission Date: 20161109
  Serious: Yes (Hospitalization, Other)
  Sender: FDA-Public Use
  Company Number: BR-BRISTOL-MYERS SQUIBB COMPANY-BMS-2016-062623

PATIENT
  Age: 75 Year
  Sex: Female

DRUGS (1)
  1. GLIFAGE XR [Suspect]
     Active Substance: METFORMIN HYDROCHLORIDE
     Indication: DIABETES MELLITUS
     Dosage: UNK, QD
     Route: 048
     Dates: start: 20160702

REACTIONS (6)
  - Decreased appetite [Not Recovered/Not Resolved]
  - Pancreatic disorder [Unknown]
  - Hepatitis [Unknown]
  - Yellow skin [Not Recovered/Not Resolved]
  - Nausea [Not Recovered/Not Resolved]
  - Ocular icterus [Unknown]

NARRATIVE: CASE EVENT DATE: 201607
